FAERS Safety Report 10653870 (Version 1)
Quarter: 2014Q4

REPORT INFORMATION
  Report Type: Spontaneous
  Country: US (occurrence: None)
  Receive Date: 20141205
  Receipt Date: 20141205
  Transmission Date: 20150529
  Serious: Yes (Other)
  Sender: FDA-Public Use
  Company Number: 163-POMAL-14083206

PATIENT
  Age: 54 Year
  Sex: Male
  Weight: 128 kg

DRUGS (11)
  1. POMALYST [Suspect]
     Active Substance: POMALIDOMIDE
     Indication: PLASMA CELL MYELOMA
     Dosage: 4 MG, 21 IN 21 D
     Route: 048
     Dates: start: 20140709
  2. LOPRESSOR [Concomitant]
     Active Substance: METOPROLOL TARTRATE
  3. RISPERDAL [Concomitant]
     Active Substance: RISPERIDONE
  4. COLACE [Concomitant]
     Active Substance: DOCUSATE SODIUM
  5. ACYCLOVIR (ACICLOVIR) [Concomitant]
  6. NORCO (VICODIN) [Concomitant]
  7. CELEXA [Concomitant]
     Active Substance: CITALOPRAM HYDROBROMIDE
  8. DEXAMETHASONE (DEXAMETHASONE) [Concomitant]
     Active Substance: DEXAMETHASONE
  9. DICLOFENAC SODIUM (DICLOFENAC SODIUM) [Concomitant]
     Active Substance: DICLOFENAC SODIUM
  10. MORPHINE SULFATE (MORPHINE SULFATE) [Concomitant]
  11. ZOFRAN (ONDANSETRON HYDROCHLORIDE) [Concomitant]

REACTIONS (1)
  - Deep vein thrombosis [None]

NARRATIVE: CASE EVENT DATE: 20140813
